FAERS Safety Report 12358890 (Version 1)
Quarter: 2016Q2

REPORT INFORMATION
  Report Type: Spontaneous
  Country: DK (occurrence: DK)
  Receive Date: 20160512
  Receipt Date: 20160512
  Transmission Date: 20160815
  Serious: Yes (Hospitalization)
  Sender: FDA-Public Use
  Company Number: DK-ACTAVIS-2016-09867

PATIENT
  Age: 39 Year
  Sex: Female

DRUGS (5)
  1. LYNESTRENOL [Concomitant]
     Active Substance: LYNESTRENOL
     Indication: CONTRACEPTION
     Dosage: UNK
     Route: 065
  2. PINEX                              /00020001/ [Concomitant]
     Active Substance: ACETAMINOPHEN
     Indication: OSTEOARTHRITIS
     Dosage: UNK
     Route: 065
  3. IBUPROFEN ACTAVIS [Suspect]
     Active Substance: IBUPROFEN
     Indication: OSTEOARTHRITIS
     Dosage: 400 MG, PRN
     Route: 048
     Dates: start: 20160402, end: 20160402
  4. BENADRYL                           /00945501/ [Concomitant]
     Indication: URTICARIA
     Dosage: UNK
     Route: 065
     Dates: start: 20160403, end: 20160405
  5. GLUCOSAMIN                         /00943602/ [Concomitant]
     Indication: OSTEOARTHRITIS
     Dosage: UNK
     Route: 065

REACTIONS (2)
  - Urticaria [Recovering/Resolving]
  - Lip swelling [Unknown]

NARRATIVE: CASE EVENT DATE: 20160402
